FAERS Safety Report 10006663 (Version 1)
Quarter: 2014Q1

REPORT INFORMATION
  Report Type: Spontaneous
  Country: US (occurrence: US)
  Receive Date: 20140313
  Receipt Date: 20140313
  Transmission Date: 20141002
  Serious: No
  Sender: FDA-Public Use
  Company Number: US-PFIZER INC-2014072676

PATIENT
  Age: 69 Year
  Sex: Female
  Weight: 45.35 kg

DRUGS (2)
  1. SERTRALINE HCL [Suspect]
     Indication: ANTIDEPRESSANT THERAPY
     Dosage: 25 MG, DAILY
     Dates: start: 20140211, end: 201402
  2. SERTRALINE HCL [Suspect]
     Dosage: 50 MG, DAILY
     Dates: start: 201402, end: 20140228

REACTIONS (2)
  - Bladder pain [Not Recovered/Not Resolved]
  - Pollakiuria [Not Recovered/Not Resolved]
